FAERS Safety Report 5065633-0 (Version None)
Quarter: 2006Q3

REPORT INFORMATION
  Report Type: 
  Country: None (occurrence: None)
  Receive Date: 20060725
  Receipt Date: 20060717
  Transmission Date: 20061208
  Serious: Yes (Life-Threatening, Hospitalization)
  Sender: FDA-Public Use
  Company Number: 2006BH011333

PATIENT
  Age: 60 Year
  Sex: Female

DRUGS (1)
  1. EXTRANEAL [Suspect]
     Indication: RENAL FAILURE CHRONIC
     Dosage: 2.5 L; AT BEDTIME; IP
     Route: 033
     Dates: start: 20060314

REACTIONS (3)
  - DEVICE INTERACTION [None]
  - HAEMODIALYSIS [None]
  - HYPOGLYCAEMIC COMA [None]
